FAERS Safety Report 5353313-3 (Version None)
Quarter: 2007Q2

REPORT INFORMATION
  Report Type: 
  Country: None (occurrence: None)
  Receive Date: 20070518
  Receipt Date: 20070307
  Transmission Date: 20071010
  Serious: No
  Sender: FDA-Public Use
  Company Number: TPA2007A00569

PATIENT
  Age: 49 Year
  Sex: Female

DRUGS (1)
  1. ROZEREM [Suspect]
     Indication: SLEEP DISORDER
     Dosage: 8 MG, PER ORAL
     Route: 048

REACTIONS (4)
  - FEELING JITTERY [None]
  - INITIAL INSOMNIA [None]
  - NERVOUSNESS [None]
  - POOR QUALITY SLEEP [None]
